FAERS Safety Report 7985786-1 (Version None)
Quarter: 2011Q4

REPORT INFORMATION
  Report Type: 
  Country: None (occurrence: None)
  Receive Date: 20111214
  Receipt Date: 20111130
  Transmission Date: 20120403
  Serious: Yes (Death, Life-Threatening, Hospitalization, Other)
  Sender: FDA-Public Use
  Company Number: 2009AL005148

PATIENT
  Age: 83 Year
  Sex: Female
  Weight: 54.4316 kg

DRUGS (20)
  1. KCL (CON.) [Concomitant]
  2. PROPULSID (CON.) [Concomitant]
  3. CEFAZOLIN (CON.) [Concomitant]
  4. CIPROFLOXACIN (CON.) [Concomitant]
  5. MORPHINE (CON.) [Concomitant]
  6. THICK IT (CON.) [Concomitant]
  7. NTG (CON.) [Concomitant]
  8. DIGOXIN [Suspect]
     Indication: CARDIAC FAILURE CONGESTIVE
     Dosage: 0.125 MG;BIW;PO
     Route: 048
     Dates: start: 20061127, end: 20071122
  9. ASPIRINE (CON.) [Concomitant]
  10. DEMADEX (CON.) [Concomitant]
  11. FLEXERIL (CON.) [Concomitant]
  12. LEVOTHYROXINE (CON.) [Concomitant]
  13. AMILORIDE (CON.) [Concomitant]
  14. HALOPERIDOL (CON.) [Concomitant]
  15. PRILOSEC (CON.) [Concomitant]
  16. PROTONIX (CON.) [Concomitant]
  17. ANCEF (CON.) [Concomitant]
  18. HEPARIN (CON.) [Concomitant]
  19. LEVAQUIN (CON.) [Concomitant]
  20. TOPROL XL (CON.) [Concomitant]

REACTIONS (72)
  - SURGERY [None]
  - OSTEOARTHRITIS [None]
  - ANAEMIA [None]
  - ARTHRITIS BACTERIAL [None]
  - FEELING HOT [None]
  - DIZZINESS [None]
  - ECCHYMOSIS [None]
  - BLOOD UREA INCREASED [None]
  - ESCHERICHIA INFECTION [None]
  - AORTIC DILATATION [None]
  - MULTIPLE INJURIES [None]
  - CELLULITIS [None]
  - ERYTHEMA [None]
  - CHOKING [None]
  - ARTHRITIS [None]
  - BLOOD SODIUM DECREASED [None]
  - BLOOD ALBUMIN DECREASED [None]
  - AKINESIA [None]
  - ECONOMIC PROBLEM [None]
  - URINARY TRACT INFECTION [None]
  - HIATUS HERNIA [None]
  - CARDIAC FAILURE CONGESTIVE [None]
  - EAR PAIN [None]
  - DYSPHAGIA [None]
  - ARTHRALGIA [None]
  - TENDON INJURY [None]
  - WOUND INFECTION [None]
  - ABDOMINAL PAIN UPPER [None]
  - HUNGER [None]
  - PROTEIN TOTAL DECREASED [None]
  - IMPAIRED GASTRIC EMPTYING [None]
  - PAIN IN EXTREMITY [None]
  - KNEE OPERATION [None]
  - HAEMATOMA [None]
  - HYPERTENSION [None]
  - PNEUMONIA VIRAL [None]
  - TENDON RUPTURE [None]
  - INFECTION [None]
  - CULTURE STOOL POSITIVE [None]
  - VOMITING [None]
  - GASTROOESOPHAGEAL REFLUX DISEASE [None]
  - PULMONARY OEDEMA [None]
  - PLEURAL EFFUSION [None]
  - CARDIAC DISORDER [None]
  - NAUSEA [None]
  - OEDEMA PERIPHERAL [None]
  - DYSPNOEA [None]
  - PAIN [None]
  - JOINT RANGE OF MOTION DECREASED [None]
  - WOUND DEHISCENCE [None]
  - DYSPEPSIA [None]
  - ANGINA UNSTABLE [None]
  - CARDIAC MURMUR [None]
  - MYOCARDIAL INFARCTION [None]
  - BLOOD CALCIUM DECREASED [None]
  - MITRAL VALVE INCOMPETENCE [None]
  - UNEVALUABLE EVENT [None]
  - FALL [None]
  - CONSTIPATION [None]
  - SYNCOPE [None]
  - CONTUSION [None]
  - CHEST PAIN [None]
  - BLOOD CHLORIDE DECREASED [None]
  - SYNOVIAL CYST [None]
  - GASTROINTESTINAL DISORDER [None]
  - COUGH [None]
  - CHEST DISCOMFORT [None]
  - STAPHYLOCOCCAL BACTERAEMIA [None]
  - DEVICE RELATED INFECTION [None]
  - BLOOD POTASSIUM DECREASED [None]
  - PNEUMONIA [None]
  - ULCER [None]
